FAERS Safety Report 8530682 (Version 4)
Quarter: 2014Q2

REPORT INFORMATION
  Report Type: Report from Study
  Country: CA (occurrence: CA)
  Receive Date: 20120425
  Receipt Date: 20140609
  Transmission Date: 20141212
  Serious: Yes (Other)
  Sender: FDA-Public Use
  Company Number: CA-ROCHE-1060017

PATIENT
  Age: 54 Year
  Sex: Female
  Weight: 64 kg

DRUGS (13)
  1. RITUXAN [Suspect]
     Indication: RHEUMATOID ARTHRITIS
     Dosage: FREQUENCY: 1 PER 2 WEEKS
     Route: 042
     Dates: start: 20110414
  2. RITUXAN [Suspect]
     Indication: DERMATOMYOSITIS
  3. VITAMIN C [Concomitant]
  4. CYCLOSPORIN [Concomitant]
     Indication: DERMATOMYOSITIS
     Route: 048
  5. ACTONEL [Concomitant]
     Indication: OSTEOPOROSIS
     Route: 048
  6. CALCITONIN [Concomitant]
     Indication: OSTEOPOROSIS
     Route: 065
     Dates: start: 20110914, end: 20120222
  7. PREDNISONE [Concomitant]
     Indication: DERMATOMYOSITIS
     Route: 048
     Dates: start: 20020101
  8. METHOTREXATE [Concomitant]
  9. ACETAMINOPHEN [Concomitant]
     Route: 048
     Dates: start: 20110414
  10. DIPHENHYDRAMINE HCL [Concomitant]
     Route: 048
     Dates: start: 20110414
  11. METHYLPREDNISOLONE [Concomitant]
     Route: 042
     Dates: start: 20110414
  12. PANTOLOC [Concomitant]
  13. FORTEO [Concomitant]
     Indication: OSTEOPOROSIS
     Route: 065
     Dates: start: 20120222

REACTIONS (4)
  - Intervertebral disc disorder [Recovering/Resolving]
  - Intervertebral disc compression [Unknown]
  - Dermatomyositis [Unknown]
  - Off label use [Unknown]
